FAERS Safety Report 11756713 (Version 1)
Quarter: 2015Q4

REPORT INFORMATION
  Report Type: Spontaneous
  Country: US (occurrence: US)
  Receive Date: 20151120
  Receipt Date: 20151120
  Transmission Date: 20160304
  Serious: Yes (Other)
  Sender: FDA-Public Use
  Company Number: US-CIPLA LTD.-2015US08577

PATIENT

DRUGS (5)
  1. GEMCITABINE [Suspect]
     Active Substance: GEMCITABINE\GEMCITABINE HYDROCHLORIDE
     Indication: LYMPHOMA
     Dosage: 75 MG/M2, QD
  2. BUSULFAN [Suspect]
     Active Substance: BUSULFAN
     Indication: LYMPHOMA
     Dosage: 32 MG/M2, OVER 60 MINUTES
     Route: 042
  3. VORINOSTAT [Suspect]
     Active Substance: VORINOSTAT
     Indication: LYMPHOMA
     Dosage: ADMINISTERED FROM DAYS 8 TO 2 AT DOSE RANGING FROM 200 TO 1000 MG DAILY PER COHORT
     Route: 048
  4. BUSULFAN [Suspect]
     Active Substance: BUSULFAN
     Dosage: DAILY OVER 3 HOURS FROM DAYS 8 TO 5
  5. MELPHALAN [Suspect]
     Active Substance: MELPHALAN
     Indication: LYMPHOMA
     Dosage: 60 MG/M2, QD
     Route: 065

REACTIONS (1)
  - Disease recurrence [Unknown]
